FAERS Safety Report 7949520-3 (Version None)
Quarter: 2011Q4

REPORT INFORMATION
  Report Type: 
  Country: None (occurrence: None)
  Receive Date: 20111125
  Receipt Date: 20111114
  Transmission Date: 20120403
  Serious: Yes (Other)
  Sender: FDA-Public Use
  Company Number: 11-001226

PATIENT
  Age: 18 Year
  Sex: Female

DRUGS (1)
  1. LOESTRIN 24 FE [Suspect]
     Indication: OVARIAN CYST
     Dosage: 20/1000 UG, QD, ORAL
     Route: 048

REACTIONS (4)
  - SCAR [None]
  - SURGERY [None]
  - OEDEMA PERIPHERAL [None]
  - PAIN IN EXTREMITY [None]
